FAERS Safety Report 15191123 (Version 1)
Quarter: 2018Q3

REPORT INFORMATION
  Report Type: Spontaneous
  Country: JP (occurrence: JP)
  Receive Date: 20180724
  Receipt Date: 20180724
  Transmission Date: 20181010
  Serious: Yes (Hospitalization)
  Sender: FDA-Public Use
  Company Number: JP-JNJFOC-20180726526

PATIENT
  Age: 51 Year
  Sex: Male
  Weight: 89 kg

DRUGS (6)
  1. VOGLIBOSE [Concomitant]
     Active Substance: VOGLIBOSE
     Indication: DIABETES MELLITUS
     Route: 048
  2. FASINUMAB [Suspect]
     Active Substance: FASINUMAB
     Indication: OSTEOARTHRITIS
     Route: 058
     Dates: start: 20180420
  3. URINMET [Concomitant]
     Active Substance: POTASSIUM CITRATE\SODIUM CITRATE
     Indication: HYPERURICAEMIA
     Route: 048
  4. RIBALL [Concomitant]
     Active Substance: ALLOPURINOL
     Indication: HYPERURICAEMIA
     Route: 048
  5. CANAGLU [Suspect]
     Active Substance: CANAGLIFLOZIN
     Indication: DIABETES MELLITUS
     Route: 048
  6. AZILVA [Concomitant]
     Active Substance: AZILSARTAN KAMEDOXOMIL
     Indication: HYPERTENSION
     Route: 048

REACTIONS (1)
  - Heat illness [Recovered/Resolved]

NARRATIVE: CASE EVENT DATE: 20180710
